FAERS Safety Report 14796835 (Version 1)
Quarter: 2018Q2

REPORT INFORMATION
  Report Type: Report from Study
  Country: US (occurrence: US)
  Receive Date: 20180423
  Receipt Date: 20180423
  Transmission Date: 20180711
  Serious: No
  Sender: FDA-Public Use
  Company Number: US-AMGEN-USASL2018050786

PATIENT
  Sex: Female

DRUGS (2)
  1. LIVALO [Concomitant]
     Active Substance: PITAVASTATIN CALCIUM
  2. REPATHA [Suspect]
     Active Substance: EVOLOCUMAB
     Indication: BLOOD CHOLESTEROL INCREASED
     Dosage: 140 MG, Q2WK
     Route: 065

REACTIONS (3)
  - Head discomfort [Unknown]
  - Nausea [Unknown]
  - Rhinorrhoea [Unknown]
